FAERS Safety Report 6563856-2 (Version None)
Quarter: 2010Q1

REPORT INFORMATION
  Report Type: 
  Country: None (occurrence: None)
  Receive Date: 20100130
  Receipt Date: 20091230
  Transmission Date: 20100710
  Serious: Yes (Death)
  Sender: FDA-Public Use
  Company Number: US-ABBOTT-09P-163-0616942-00

PATIENT
  Sex: Male
  Weight: 99.88 kg

DRUGS (2)
  1. HUMIRA [Suspect]
     Indication: CROHN'S DISEASE
     Route: 058
     Dates: start: 20090501
  2. HUMIRA [Suspect]
     Indication: ARTHRITIS

REACTIONS (1)
  - LUNG NEOPLASM MALIGNANT [None]
